FAERS Safety Report 23833780 (Version 1)
Quarter: 2024Q2

REPORT INFORMATION
  Report Type: Spontaneous
  Country: CN (occurrence: CN)
  Receive Date: 20240509
  Receipt Date: 20240509
  Transmission Date: 20240716
  Serious: Yes (Life-Threatening, Hospitalization)
  Sender: FDA-Public Use
  Company Number: CN-ABBVIE-5748371

PATIENT
  Age: 75 Year
  Sex: Male

DRUGS (2)
  1. VENETOCLAX [Suspect]
     Active Substance: VENETOCLAX
     Indication: Leukocytosis
     Dosage: 200 MILLIGRAM
     Route: 048
     Dates: start: 20240130, end: 20240208
  2. CYTARABINE [Suspect]
     Active Substance: CYTARABINE
     Indication: Thrombocytopenia
     Dosage: 0.030 GRAM
     Route: 058
     Dates: start: 20240126, end: 20240208

REACTIONS (1)
  - Myelosuppression [Recovering/Resolving]

NARRATIVE: CASE EVENT DATE: 20240210
